FAERS Safety Report 9872983 (Version 2)
Quarter: 2014Q1

REPORT INFORMATION
  Report Type: Spontaneous
  Country: US (occurrence: US)
  Receive Date: 20140206
  Receipt Date: 20140206
  Transmission Date: 20141002
  Serious: No
  Sender: FDA-Public Use
  Company Number: US-ACORDA-ACO_25491_2011

PATIENT
  Age: 68 Year
  Sex: Male
  Weight: 92.97 kg

DRUGS (2)
  1. AMPYRA [Suspect]
     Indication: GAIT DISTURBANCE
     Dosage: 10 MG, Q 12 HRS
     Route: 048
     Dates: start: 201012, end: 201012
  2. AMPYRA [Suspect]
     Dosage: 10 MG, Q 12 HRS
     Route: 065
     Dates: start: 20130530

REACTIONS (3)
  - Gastroenteritis viral [Recovered/Resolved]
  - Nausea [Recovered/Resolved]
  - Medication error [Unknown]
